FAERS Safety Report 10038686 (Version 1)
Quarter: 2014Q1

REPORT INFORMATION
  Report Type: Report from Study
  Country: BR (occurrence: BR)
  Receive Date: 20140326
  Receipt Date: 20140326
  Transmission Date: 20141002
  Serious: Yes (Hospitalization, Other)
  Sender: FDA-Public Use
  Company Number: BR-ABBVIE-14P-020-1214292-00

PATIENT
  Age: 54 Year
  Sex: Male
  Weight: 96 kg

DRUGS (4)
  1. HUMIRA [Suspect]
     Indication: PSORIATIC ARTHROPATHY
     Route: 058
     Dates: start: 20081101, end: 20131115
  2. AMLODIPINE [Concomitant]
     Indication: BLOOD PRESSURE MANAGEMENT
  3. METAST [Concomitant]
     Indication: PRODUCT USED FOR UNKNOWN INDICATION
  4. UNKNOWN MEDICATIONS [Concomitant]
     Indication: BLOOD PRESSURE MANAGEMENT

REACTIONS (3)
  - Drug-induced liver injury [Recovered/Resolved]
  - Heart rate decreased [Recovered/Resolved]
  - Abdominal pain [Recovered/Resolved]
